FAERS Safety Report 5446806-1 (Version None)
Quarter: 2007Q3

REPORT INFORMATION
  Report Type: 
  Country: None (occurrence: None)
  Receive Date: 20070907
  Receipt Date: 20070828
  Transmission Date: 20080115
  Serious: Yes (Hospitalization, Other)
  Sender: FDA-Public Use
  Company Number: US-PFIZER INC-2007072257

PATIENT
  Sex: Female
  Weight: 67.6 kg

DRUGS (9)
  1. NEURONTIN [Suspect]
     Indication: NEUROPATHY
     Dosage: DAILY DOSE:2700MG
     Route: 048
  2. LYRICA [Suspect]
     Indication: NEUROPATHY
     Route: 048
  3. NORVASC [Suspect]
     Indication: BLOOD PRESSURE
     Route: 048
  4. ZOLOFT [Concomitant]
     Indication: ANTIDEPRESSANT THERAPY
     Route: 048
  5. ZOCOR [Concomitant]
     Route: 048
  6. VICODIN [Concomitant]
     Indication: PAIN
     Route: 048
  7. CELEBREX [Concomitant]
     Indication: ARTHRITIS
     Route: 048
  8. ATIVAN [Concomitant]
     Indication: ANXIETY
     Route: 048
  9. VITAMINS [Concomitant]

REACTIONS (20)
  - ABDOMINAL DISTENSION [None]
  - ADVERSE EVENT [None]
  - BALANCE DISORDER [None]
  - BURNING SENSATION [None]
  - CONVULSION [None]
  - DRUG INEFFECTIVE [None]
  - DRY SKIN [None]
  - FALL [None]
  - FEELING ABNORMAL [None]
  - HYPERHIDROSIS [None]
  - HYPERTENSION [None]
  - HYPOAESTHESIA [None]
  - NERVE BLOCK [None]
  - NERVE INJURY [None]
  - ORAL DISCOMFORT [None]
  - SPINAL COLUMN STENOSIS [None]
  - SPINAL DISORDER [None]
  - STRESS [None]
  - TONGUE DISCOLOURATION [None]
  - TREATMENT NONCOMPLIANCE [None]
